FAERS Safety Report 16237577 (Version 11)
Quarter: 2020Q4

REPORT INFORMATION
  Report Type: Report from Study
  Country: CH (occurrence: CH)
  Receive Date: 20190425
  Receipt Date: 20201120
  Transmission Date: 20210113
  Serious: Yes (Other)
  Sender: FDA-Public Use
  Company Number: PHHY2019CH091132

PATIENT
  Age: 45 Year
  Sex: Male

DRUGS (7)
  1. COSENTYX [Suspect]
     Active Substance: SECUKINUMAB
     Dosage: 300 MG,UNK
     Route: 065
     Dates: start: 20200203, end: 20200301
  2. COSENTYX [Suspect]
     Active Substance: SECUKINUMAB
     Dosage: 300 MG, UNK
     Route: 065
     Dates: start: 20200302
  3. COSENTYX [Suspect]
     Active Substance: SECUKINUMAB
     Indication: PSORIASIS
     Dosage: 300 MG, UNK
     Route: 065
     Dates: start: 20171009, end: 20171105
  4. TEMESTA [Concomitant]
     Indication: PROPHYLAXIS
     Dosage: 1 MG, PRN
     Route: 048
  5. COSENTYX [Suspect]
     Active Substance: SECUKINUMAB
     Dosage: 300 MG, UNK
     Route: 065
     Dates: start: 20190402, end: 20191029
  6. COSENTYX [Suspect]
     Active Substance: SECUKINUMAB
     Dosage: 300 MG, UNK
     Route: 065
     Dates: start: 20171106, end: 20190401
  7. CRESTOR [Concomitant]
     Active Substance: ROSUVASTATIN CALCIUM
     Indication: HYPERCHOLESTEROLAEMIA
     Dosage: 20 MG, QD
     Route: 048
     Dates: start: 20120424

REACTIONS (8)
  - Pancreatitis [Recovered/Resolved]
  - Anxiety [Not Recovered/Not Resolved]
  - Amylase abnormal [Recovered/Resolved]
  - Ear infection fungal [Recovered/Resolved]
  - Nausea [Not Recovered/Not Resolved]
  - Dermal cyst [Recovered/Resolved]
  - Reflux gastritis [Recovering/Resolving]
  - Weight decreased [Not Recovered/Not Resolved]

NARRATIVE: CASE EVENT DATE: 20180915
